FAERS Safety Report 8503098-4 (Version None)
Quarter: 2012Q3

REPORT INFORMATION
  Report Type: 
  Country: None (occurrence: None)
  Receive Date: 20120711
  Receipt Date: 20120627
  Transmission Date: 20120928
  Serious: Yes (Life-Threatening, Hospitalization, Other)
  Sender: FDA-Public Use
  Company Number: BE-ELI_LILLY_AND_COMPANY-BE201207002423

PATIENT
  Sex: Female

DRUGS (7)
  1. VENORUTON [Concomitant]
     Indication: VENOUS INSUFFICIENCY
     Dosage: 1 DF, QD
     Route: 048
  2. MOXONIDINE [Concomitant]
     Dosage: 0.4 MG, QD
  3. MELOXICAM [Concomitant]
     Indication: PAIN IN EXTREMITY
     Dosage: 15 MG, QD
     Route: 048
  4. MODURETIC 5-50 [Concomitant]
     Indication: DIURETIC THERAPY
     Route: 048
  5. SIMVASTATIN [Concomitant]
     Indication: HYPERLIPIDAEMIA
     Dosage: 40 MG, QD
  6. RALOXIFENE HYDROCHLORIDE [Suspect]
     Indication: OSTEOPOROSIS
     Dosage: 60 MG, QD
     Route: 048
  7. CARDIOASPIRINE [Concomitant]
     Indication: THROMBOSIS PROPHYLAXIS
     Dosage: 100 MG, QD

REACTIONS (3)
  - PULMONARY HYPERTENSION [None]
  - PANCREATIC NEOPLASM [None]
  - PULMONARY EMBOLISM [None]
